FAERS Safety Report 7770294-3 (Version None)
Quarter: 2011Q3

REPORT INFORMATION
  Report Type: 
  Country: None (occurrence: None)
  Receive Date: 20110922
  Receipt Date: 20110526
  Transmission Date: 20111222
  Serious: No
  Sender: FDA-Public Use
  Company Number: US-ASTRAZENECA-2011SE32843

PATIENT
  Age: 56 Year
  Sex: Male

DRUGS (6)
  1. DEPAKOTE [Concomitant]
  2. ALBUTEROL [Concomitant]
  3. SEROQUEL [Suspect]
     Indication: BIPOLAR DISORDER
     Route: 048
  4. LEXAPRO [Concomitant]
  5. XANAX [Concomitant]
  6. SIMVASTATIN [Concomitant]
     Indication: BLOOD CHOLESTEROL

REACTIONS (4)
  - PULMONARY CONGESTION [None]
  - SINUSITIS [None]
  - OROPHARYNGEAL PAIN [None]
  - CHRONIC OBSTRUCTIVE PULMONARY DISEASE [None]
